FAERS Safety Report 4286177-X (Version None)
Quarter: 2004Q1

REPORT INFORMATION
  Report Type: 
  Country: None (occurrence: None)
  Receive Date: 20040205
  Receipt Date: 20040127
  Transmission Date: 20041129
  Serious: Yes (Other)
  Sender: FDA-Public Use
  Company Number: PHEH2004US01263

PATIENT
  Age: 62 Year
  Sex: Male
  Weight: 120 kg

DRUGS (6)
  1. DIOVAN HCT [Suspect]
     Indication: HYPERTENSION
     Dosage: ONE TABLET DAILY
     Route: 048
     Dates: start: 20040112, end: 20040118
  2. DIOVAN HCT [Suspect]
     Dosage: ONE TABLET DAILY
     Dates: start: 20040120, end: 20040127
  3. ZOCOR [Concomitant]
     Indication: BLOOD CHOLESTEROL INCREASED
  4. HYZAAR [Concomitant]
     Indication: HYPERTENSION
  5. SULAR [Concomitant]
     Indication: HYPERTENSION
  6. K-DUR 10 [Concomitant]

REACTIONS (1)
  - BLOOD URINE [None]
